FAERS Safety Report 8392546-9 (Version None)
Quarter: 2012Q2

REPORT INFORMATION
  Report Type: 
  Country: None (occurrence: None)
  Receive Date: 20120529
  Receipt Date: 20120517
  Transmission Date: 20120825
  Serious: Yes (Hospitalization)
  Sender: FDA-Public Use
  Company Number: JP-MERCK-1202USA01773

PATIENT
  Age: 64 Year
  Sex: Male
  Weight: 52 kg

DRUGS (6)
  1. RABEPRAZOLE SODIUM [Concomitant]
     Route: 048
     Dates: end: 20120209
  2. FOIPAN [Concomitant]
     Route: 048
     Dates: end: 20120209
  3. JANUVIA [Suspect]
     Indication: DIABETES MELLITUS
     Route: 048
     Dates: start: 20110101, end: 20120207
  4. BIO THREE [Concomitant]
     Route: 048
     Dates: end: 20120229
  5. SUCRALFATE [Concomitant]
     Route: 048
     Dates: end: 20120209
  6. BERIZYM (ASPERGILLUS ORYZAE EXTRACT (+) CELLULASE (+) LIPASE (+) PANCR [Concomitant]
     Route: 048
     Dates: end: 20120209

REACTIONS (5)
  - GLYCOSYLATED HAEMOGLOBIN INCREASED [None]
  - PANCREATITIS [None]
  - ABDOMINAL PAIN UPPER [None]
  - BLOOD ELASTASE INCREASED [None]
  - LIPASE INCREASED [None]
